FAERS Safety Report 7477774-9 (Version None)
Quarter: 2011Q2

REPORT INFORMATION
  Report Type: 
  Country: None (occurrence: None)
  Receive Date: 20110513
  Receipt Date: 20110304
  Transmission Date: 20111010
  Serious: Yes (Other)
  Sender: FDA-Public Use
  Company Number: A0917709A

PATIENT
  Sex: Female

DRUGS (1)
  1. TREXIMET [Suspect]
     Route: 048
     Dates: start: 20090306

REACTIONS (1)
  - STEVENS-JOHNSON SYNDROME [None]
